FAERS Safety Report 14471813 (Version 2)
Quarter: 2018Q2

REPORT INFORMATION
  Report Type: Spontaneous
  Country: US (occurrence: US)
  Receive Date: 20180131
  Receipt Date: 20180411
  Transmission Date: 20180711
  Serious: Yes (Other)
  Sender: FDA-Public Use
  Company Number: US-DSJP-DSU-2017-147961

PATIENT

DRUGS (1)
  1. OLMESARTAN MEDOXOMIL. [Suspect]
     Active Substance: OLMESARTAN MEDOXOMIL
     Indication: PRODUCT USED FOR UNKNOWN INDICATION
     Dosage: UNK
     Dates: start: 20090101

REACTIONS (8)
  - Weight decreased [Unknown]
  - Abdominal pain [Unknown]
  - Gastrointestinal carcinoma [Unknown]
  - Rectal polyp [Unknown]
  - Vomiting [Unknown]
  - Diarrhoea [Unknown]
  - Rectal haemorrhage [Unknown]
  - Nausea [Unknown]

NARRATIVE: CASE EVENT DATE: 20110920
